FAERS Safety Report 8774715 (Version 1)
Quarter: 2012Q4

REPORT INFORMATION
  Report Type: 
  Country: ZA (occurrence: ZA)
  Receive Date: 20120910
  Receipt Date: 20120910
  Transmission Date: 20130627
  Serious: Yes (Other)
  Sender: FDA-Public Use
  Company Number: ZA-NOVOPROD-358952

PATIENT
  Age: 51 Year
  Sex: Male
  Weight: 106 kg

DRUGS (5)
  1. NOVORAPID FLEXPEN [Suspect]
     Indication: PRODUCT USED FOR UNKNOWN INDICATION
     Dosage: 45 IU, qd
     Route: 058
  2. LEVEMIR FLEXPEN [Suspect]
     Indication: PRODUCT USED FOR UNKNOWN INDICATION
     Dosage: 83 IU, qd
     Route: 058
  3. SIMVASTATIN [Concomitant]
  4. COROLIN [Concomitant]
  5. ASPIRIN [Concomitant]

REACTIONS (2)
  - Myocardial infarction [Not Recovered/Not Resolved]
  - Glycosylated haemoglobin increased [None]
